FAERS Safety Report 9248567 (Version 2)
Quarter: 2014Q2

REPORT INFORMATION
  Report Type: Report from Study
  Country: CN (occurrence: CN)
  Receive Date: 20130423
  Receipt Date: 20140515
  Transmission Date: 20141212
  Serious: Yes (Other)
  Sender: FDA-Public Use
  Company Number: CN-ROCHE-1063475

PATIENT
  Sex: 0

DRUGS (4)
  1. CAPECITABINE [Suspect]
     Indication: RECTAL CANCER
     Dosage: DAY 1-5 WEEKLY
     Route: 065
  2. CAPECITABINE [Suspect]
     Dosage: DAY 1-14
     Route: 065
  3. OXALIPLATIN [Suspect]
     Indication: RECTAL CANCER
     Dosage: DAY 1
     Route: 065
  4. OXALIPLATIN [Suspect]
     Dosage: DAY 1
     Route: 065

REACTIONS (4)
  - Haematotoxicity [Unknown]
  - Diarrhoea [Unknown]
  - Dermatitis [Unknown]
  - Fatigue [Unknown]
